FAERS Safety Report 7237427-9 (Version None)
Quarter: 2011Q1

REPORT INFORMATION
  Report Type: 
  Country: None (occurrence: None)
  Receive Date: 20110121
  Receipt Date: 20110113
  Transmission Date: 20110831
  Serious: Yes (Hospitalization, Other)
  Sender: FDA-Public Use
  Company Number: DE-NOVOPROD-320694

PATIENT
  Sex: Female
  Weight: 59 kg

DRUGS (6)
  1. RAMIPRIL [Concomitant]
     Indication: HYPERTENSION
  2. LEVEMIR [Suspect]
     Indication: TYPE 1 DIABETES MELLITUS
     Dosage: UNK
     Dates: start: 20060718, end: 20080714
  3. LEVEMIR [Suspect]
     Dosage: UNK
     Dates: start: 20060718, end: 20080714
  4. PROTAPHANE [Concomitant]
  5. LEVEMIR [Suspect]
     Dosage: 10 U, UNK
  6. ASPIRIN [Concomitant]
     Indication: HYPERTENSION

REACTIONS (1)
  - CEREBROVASCULAR ACCIDENT [None]
